FAERS Safety Report 12906205 (Version 1)
Quarter: 2016Q4

REPORT INFORMATION
  Report Type: Report from Study
  Country: JP (occurrence: JP)
  Receive Date: 20161103
  Receipt Date: 20161103
  Transmission Date: 20170207
  Serious: Yes (Other)
  Sender: FDA-Public Use
  Company Number: PHJP2016JP031521

PATIENT
  Age: 78 Year
  Sex: Male
  Weight: 50.8 kg

DRUGS (2)
  1. TAKEPRON [Concomitant]
     Active Substance: LANSOPRAZOLE
     Indication: GASTRITIS
     Dosage: UNK
     Route: 065
  2. PAZOPANIB [Suspect]
     Active Substance: PAZOPANIB
     Indication: RENAL CELL CARCINOMA STAGE I
     Dosage: 400 MG, QD
     Route: 048
     Dates: start: 20160104, end: 20160314

REACTIONS (3)
  - Malignant neoplasm progression [Unknown]
  - Adverse event [Not Recovered/Not Resolved]
  - Adverse event [Recovered/Resolved]

NARRATIVE: CASE EVENT DATE: 20160118
